FAERS Safety Report 4359278-5 (Version None)
Quarter: 2004Q2

REPORT INFORMATION
  Report Type: 
  Country: None (occurrence: None)
  Receive Date: 20040512
  Receipt Date: 20040330
  Transmission Date: 20050107
  Serious: Yes (Hospitalization)
  Sender: FDA-Public Use
  Company Number: 2004SE02412

PATIENT
  Age: 28 Year
  Sex: Male

DRUGS (2)
  1. PULMICORT [Suspect]
     Indication: ASTHMA
     Dosage: 400 UG DAILY IH
     Route: 055
     Dates: start: 20040213, end: 20040320
  2. SALBUTAMOL SULPHATE [Concomitant]

REACTIONS (2)
  - GASTRIC ULCER HAEMORRHAGE [None]
  - OEDEMATOUS PANCREATITIS [None]
